FAERS Safety Report 14011844 (Version 1)
Quarter: 2017Q3

REPORT INFORMATION
  Report Type: Report from Study
  Country: US (occurrence: US)
  Receive Date: 20170926
  Receipt Date: 20170926
  Transmission Date: 20171128
  Serious: Yes (Hospitalization, Other)
  Sender: FDA-Public Use
  Company Number: US-BAYER-2017-115826

PATIENT
  Age: 66 Year
  Sex: Female

DRUGS (3)
  1. ADEMPAS [Suspect]
     Active Substance: RIOCIGUAT
     Indication: PULMONARY ARTERIAL HYPERTENSION
     Dosage: 2.5 MG, TID
     Route: 048
  2. ADEMPAS [Suspect]
     Active Substance: RIOCIGUAT
     Indication: PULMONARY ARTERIAL HYPERTENSION
     Dosage: 1.0 MG, TID
     Route: 048
     Dates: start: 20170516
  3. ADEMPAS [Suspect]
     Active Substance: RIOCIGUAT
     Indication: PULMONARY ARTERIAL HYPERTENSION
     Dosage: 2 MG, TID
     Route: 048
     Dates: start: 20170517

REACTIONS (10)
  - Mouth haemorrhage [None]
  - Flatulence [None]
  - Hypotension [None]
  - Headache [Recovered/Resolved]
  - Hospitalisation [None]
  - Dehydration [None]
  - Diarrhoea [None]
  - Eructation [None]
  - Abdominal distension [None]
  - Loss of consciousness [None]

NARRATIVE: CASE EVENT DATE: 2017
